FAERS Safety Report 19600891 (Version 1)
Quarter: 2021Q3

REPORT INFORMATION
  Report Type: Spontaneous
  Country: DE (occurrence: DE)
  Receive Date: 20210723
  Receipt Date: 20210723
  Transmission Date: 20211014
  Serious: Yes (Hospitalization)
  Sender: FDA-Public Use
  Company Number: DE-ACCORD-232665

PATIENT
  Age: 75 Year
  Sex: Male
  Weight: 110 kg

DRUGS (18)
  1. BISOPROLOL [Concomitant]
     Active Substance: BISOPROLOL
     Dosage: 5 MG, 1?0?1?0, TABLET
     Route: 048
  2. PANCREATIN [Concomitant]
     Active Substance: PANCRELIPASE
     Dosage: 25000 IE, 1?1?1?0, CAPSULE
     Route: 048
  3. EMPAGLIFLOZIN [Concomitant]
     Active Substance: EMPAGLIFLOZIN
     Dosage: 10 MG, 1?0?0?0, TABLET
     Route: 048
  4. METAMIZOLE SODIUM [Concomitant]
     Active Substance: METAMIZOLE SODIUM
     Dosage: 20 GTT, 1?1?1?0, DROPS
     Route: 048
  5. INSULIN ASPART [Concomitant]
     Active Substance: INSULIN ASPART
     Dosage: 25 IU, 1?1?1?0, SOLUTION FOR INJECTION / INFUSION
     Route: 058
  6. TRAMADOL. [Concomitant]
     Active Substance: TRAMADOL
     Dosage: 4 STROKES, 1?1?1?0, DROPS
     Route: 048
  7. DALTEPARIN [Concomitant]
     Active Substance: DALTEPARIN
     Dosage: 0.2 ML, 0?0?1?0, SOLUTION FOR INJECTION / INFUSION
     Route: 058
  8. HYDROCHLOROTHIAZIDE/IRBESARTAN [Concomitant]
     Active Substance: HYDROCHLOROTHIAZIDE\IRBESARTAN
     Dosage: 12.5/150 MG, 2?0?0?0, TABLET
     Route: 048
  9. FEBUXOSTAT. [Concomitant]
     Active Substance: FEBUXOSTAT
     Dosage: 80 MG, 0?0?1?0, TABLET
     Route: 048
  10. PANTOPRAZOLE [Concomitant]
     Active Substance: PANTOPRAZOLE
     Dosage: 40 MG, 1?0?0?0, TABLET
     Route: 048
  11. MACROGOL 3350/SODIUM CHLORIDE/SODIUM HYDROGEN CARBONATE/POTASSIUM CHLORIDE [Concomitant]
     Active Substance: POLYETHYLENE GLYCOL 3350\POTASSIUM CHLORIDE\SODIUM BICARBONATE\SODIUM CHLORIDE
     Dosage: 1?0?1?0, POWDER
     Route: 048
  12. INSULIN HUMAN/INSULIN HUMAN BIOSYNTHETIC/INSULIN HUMAN INJECTION/ISOPH/INSULIN HUMAN ZINC SUSPENSION [Concomitant]
     Active Substance: INSULIN HUMAN
     Dosage: 30 IU, 0?0?0?1, SOLUTION FOR INJECTION / INFUSION
     Route: 058
  13. LERCANIDIPINE [Concomitant]
     Active Substance: LERCANIDIPINE
     Dosage: 10 MG, 0?2?0?0, TABLET
     Route: 048
  14. ACETYLSALICYLIC ACID [Concomitant]
     Active Substance: ASPIRIN
     Dosage: 100 MG, 0?1?0?0, TABLET
     Route: 048
  15. CLOPIDOGREL [Suspect]
     Active Substance: CLOPIDOGREL BISULFATE
     Indication: PRODUCT USED FOR UNKNOWN INDICATION
     Dosage: 75 MG, 1?0?0?0, TABLET
     Route: 048
  16. DICLOFENAC [Concomitant]
     Active Substance: DICLOFENAC
     Dosage: 75 MG, 1?0?0?0, TABLET
     Route: 048
  17. CEFUROXIME. [Concomitant]
     Active Substance: CEFUROXIME
     Dosage: 500 MG, 1?0?1?0, TABLET
     Route: 048
  18. SOLIFENACIN/SOLIFENACIN SUCCINATE [Concomitant]
     Active Substance: SOLIFENACIN SUCCINATE
     Dosage: 5 MG, 1?0?0?0, TABLET
     Route: 048

REACTIONS (2)
  - Haematuria [Unknown]
  - Contraindicated product administered [Unknown]

NARRATIVE: CASE EVENT DATE: 20200930
